FAERS Safety Report 7743624-6 (Version None)
Quarter: 2011Q3

REPORT INFORMATION
  Report Type: 
  Country: None (occurrence: None)
  Receive Date: 20110819
  Receipt Date: 20110616
  Transmission Date: 20111222
  Serious: No
  Sender: FDA-Public Use
  Company Number: 035525

PATIENT
  Sex: Female
  Weight: 95 kg

DRUGS (2)
  1. KEPPRA [Suspect]
     Indication: CONVULSION
     Dosage: 1000 MG BID ORAL
     Route: 048
  2. LACOSAMIDE [Suspect]
     Indication: CONVULSION
     Dosage: 200 MCG BID, STARTED IN THE SPRING OF 2010 ORAL
     Route: 048
     Dates: start: 20100101

REACTIONS (1)
  - PREGNANCY [None]
